FAERS Safety Report 4986507-7 (Version None)
Quarter: 2006Q2

REPORT INFORMATION
  Report Type: 
  Country: None (occurrence: None)
  Receive Date: 20060428
  Receipt Date: 20060410
  Transmission Date: 20061013
  Serious: Yes (Other)
  Sender: FDA-Public Use
  Company Number: JP-ROCHE-444027

PATIENT
  Age: 51 Year
  Sex: Female

DRUGS (5)
  1. ROCEPHIN [Suspect]
     Indication: BRONCHITIS ACUTE
     Dosage: ROUTE REPORTED AS INTRAVENOUS (NOT OTHERWISE SPECIFIED).
     Route: 042
     Dates: start: 20060407, end: 20060407
  2. KASHILON [Concomitant]
     Dosage: ROUTE REPORTED AS INTRAVENOUS (NOT OTHERWISE SPECIFIED).
     Route: 042
     Dates: start: 20060407, end: 20060407
  3. FLOMOX [Concomitant]
     Route: 048
     Dates: start: 20060407, end: 20060413
  4. VOLTAREN [Concomitant]
     Route: 048
     Dates: start: 20060407, end: 20060413
  5. SELBEX [Concomitant]
     Route: 048
     Dates: start: 20060407, end: 20060413

REACTIONS (2)
  - DRUG ERUPTION [None]
  - PRURIGO [None]
